FAERS Safety Report 4784029-X (Version None)
Quarter: 2005Q3

REPORT INFORMATION
  Report Type: 
  Country: None (occurrence: None)
  Receive Date: 20050927
  Receipt Date: 20050809
  Transmission Date: 20060218
  Serious: No
  Sender: FDA-Public Use
  Company Number: USA0508105075

PATIENT
  Age: 10 Year
  Sex: Male

DRUGS (2)
  1. STRATTERA [Suspect]
  2. CONCERTA [Concomitant]

REACTIONS (3)
  - DISTURBANCE IN ATTENTION [None]
  - DRUG INEFFECTIVE [None]
  - INSOMNIA [None]
